FAERS Safety Report 7620989-7 (Version None)
Quarter: 2011Q3

REPORT INFORMATION
  Report Type: 
  Country: None (occurrence: None)
  Receive Date: 20110719
  Receipt Date: 20101011
  Transmission Date: 20111222
  Serious: No
  Sender: FDA-Public Use
  Company Number: US-KINGPHARMUSA00001-K201001257

PATIENT
  Sex: Female

DRUGS (5)
  1. LEVOXYL [Suspect]
     Dosage: UNK
     Route: 048
  2. EXFORGE [Suspect]
     Indication: BLOOD PRESSURE
     Dosage: UNK
  3. ACETAMINOPHEN [Suspect]
     Indication: BLOOD PRESSURE
     Dosage: 650 MG
  4. TEKTURNA [Suspect]
     Indication: BLOOD PRESSURE
     Dosage: UNK
  5. PEPCID [Suspect]
     Indication: GASTROOESOPHAGEAL REFLUX DISEASE
     Dosage: UNK

REACTIONS (1)
  - DIZZINESS [None]
